FAERS Safety Report 9664114 (Version 1)
Quarter: 2013Q4

REPORT INFORMATION
  Report Type: Spontaneous
  Country: US (occurrence: None)
  Receive Date: 20131030
  Receipt Date: 20131030
  Transmission Date: 20140711
  Serious: No
  Sender: FDA-Public Use
  Company Number: None

PATIENT
  Age: 63 Year
  Sex: Female
  Weight: 32.21 kg

DRUGS (1)
  1. CLARITHROMYCIN [Suspect]
     Indication: SINUSITIS
     Dosage: 500MG 1 TABLET 2 TIMES DAILY ORAL
     Route: 048
     Dates: start: 20130318

REACTIONS (2)
  - Abdominal pain upper [None]
  - Product substitution issue [None]
